FAERS Safety Report 6211891-6 (Version None)
Quarter: 2009Q2

REPORT INFORMATION
  Report Type: 
  Country: None (occurrence: None)
  Receive Date: 20090529
  Receipt Date: 20090518
  Transmission Date: 20091009
  Serious: Yes (Life-Threatening, Hospitalization)
  Sender: FDA-Public Use
  Company Number: 233803K09USA

PATIENT
  Age: 57 Year
  Sex: Female
  Weight: 57 kg

DRUGS (7)
  1. REBIF [Suspect]
     Indication: OFF LABEL USE
     Dosage: NOT REPORTED, NOT REPORTED, SUBCUTANEOUS 44 MCG, 3 IN 1 WEEKS, SUBCUTANEOUS
     Route: 058
     Dates: start: 20090101, end: 20090101
  2. IBUPROFEN [Concomitant]
  3. COLACE (DOCUSATE SODIUM) [Concomitant]
  4. TYLENOL (CAPLET) [Concomitant]
  5. NEXIUM [Concomitant]
  6. LOVENOX [Concomitant]
  7. ARIXTRA [Concomitant]

REACTIONS (19)
  - ANAEMIA [None]
  - BLOOD PRESSURE SYSTOLIC INCREASED [None]
  - BODY TEMPERATURE DECREASED [None]
  - CEREBRAL ATROPHY [None]
  - CONVULSION [None]
  - CONVULSIVE THRESHOLD LOWERED [None]
  - DYSPHAGIA [None]
  - HEART RATE DECREASED [None]
  - LOWER RESPIRATORY TRACT INFLAMMATION [None]
  - METABOLIC DISORDER [None]
  - OFF LABEL USE [None]
  - PNEUMONIA [None]
  - POSTICTAL STATE [None]
  - PULMONARY MASS [None]
  - RESPIRATORY DISTRESS [None]
  - SINUS DISORDER [None]
  - STATUS EPILEPTICUS [None]
  - SUPRAVENTRICULAR TACHYCARDIA [None]
  - UNRESPONSIVE TO STIMULI [None]
